APPROVED DRUG PRODUCT: ISOSORBIDE MONONITRATE
Active Ingredient: ISOSORBIDE MONONITRATE
Strength: 20MG
Dosage Form/Route: TABLET;ORAL
Application: A075147 | Product #001
Applicant: ANI PHARMACEUTICALS INC
Approved: Nov 27, 1998 | RLD: No | RS: No | Type: DISCN